FAERS Safety Report 25685127 (Version 1)
Quarter: 2025Q3

REPORT INFORMATION
  Report Type: Spontaneous
  Country: IR (occurrence: IR)
  Receive Date: 20250815
  Receipt Date: 20250815
  Transmission Date: 20251020
  Serious: Yes (Hospitalization, Other)
  Sender: ACCORD
  Company Number: IR-Accord-499642

PATIENT
  Age: 35 Year
  Sex: Female

DRUGS (10)
  1. ATROPINE [Suspect]
     Active Substance: ATROPINE
     Indication: Anticholinergic effect
  2. NEOSTIGMINE [Suspect]
     Active Substance: NEOSTIGMINE
     Indication: Anticholinergic effect
  3. LIDOCAINE [Concomitant]
     Active Substance: LIDOCAINE
  4. EPINEPHRINE [Concomitant]
     Active Substance: EPINEPHRINE
  5. THIOPENTAL [Concomitant]
     Active Substance: THIOPENTAL
  6. ATRACURIUM [Concomitant]
     Active Substance: ATRACURIUM
  7. FENTANYL [Concomitant]
     Active Substance: FENTANYL
  8. MIDAZOLAM [Concomitant]
     Active Substance: MIDAZOLAM
  9. REMIFENTANIL HYDROCHLORIDE [Concomitant]
     Active Substance: REMIFENTANIL HYDROCHLORIDE
  10. PROPOFOL [Concomitant]
     Active Substance: PROPOFOL

REACTIONS (2)
  - Myasthenia gravis [Unknown]
  - Mydriasis [Unknown]
